FAERS Safety Report 23053201 (Version 1)
Quarter: 2023Q4

REPORT INFORMATION
  Report Type: Spontaneous
  Country: US (occurrence: US)
  Receive Date: 20231011
  Receipt Date: 20231011
  Transmission Date: 20240110
  Serious: Yes (Hospitalization)
  Sender: FDA-Public Use
  Company Number: US-BEIGENE-BGN-2023-011259

PATIENT

DRUGS (15)
  1. BRUKINSA [Suspect]
     Active Substance: ZANUBRUTINIB
     Indication: Mantle cell lymphoma
     Dosage: 160 MILLIGRAM, BID
     Route: 048
     Dates: start: 20211021, end: 20230920
  2. ZOVIRAX [Concomitant]
     Active Substance: ACYCLOVIR
  3. PROVENTIL [Concomitant]
     Active Substance: ALBUTEROL
  4. NORVASC [Concomitant]
     Active Substance: AMLODIPINE BESYLATE
  5. TENORMIN [Concomitant]
     Active Substance: ATENOLOL
  6. VITAMIN D3 [Concomitant]
     Active Substance: CHOLECALCIFEROL
  7. TYLENOL PM EXTRA STRENGTH [Concomitant]
     Active Substance: ACETAMINOPHEN\DIPHENHYDRAMINE HYDROCHLORIDE
  8. FLONASE [Concomitant]
     Active Substance: FLUTICASONE PROPIONATE
  9. SYNTHROID [Concomitant]
     Active Substance: LEVOTHYROXINE SODIUM
  10. PATANOL [Concomitant]
     Active Substance: OLOPATADINE HYDROCHLORIDE
  11. PROTONIX [Concomitant]
     Active Substance: PANTOPRAZOLE SODIUM
  12. GLYCOLAX [Concomitant]
     Active Substance: POLYETHYLENE GLYCOL 3350
  13. PRAVACHOL [Concomitant]
     Active Substance: PRAVASTATIN SODIUM
  14. MICARDIS [Concomitant]
     Active Substance: TELMISARTAN
  15. CYANOCOBALAMIN [Concomitant]
     Active Substance: CYANOCOBALAMIN

REACTIONS (1)
  - Palpitations [Recovered/Resolved]

NARRATIVE: CASE EVENT DATE: 20230919
